FAERS Safety Report 6610227-6 (Version None)
Quarter: 2010Q1

REPORT INFORMATION
  Report Type: 
  Country: None (occurrence: None)
  Receive Date: 20100302
  Receipt Date: 20100212
  Transmission Date: 20100710
  Serious: Yes (Death)
  Sender: FDA-Public Use
  Company Number: US-BAXTER-2010BH003115

PATIENT
  Age: 69 Year
  Sex: Male
  Weight: 67 kg

DRUGS (23)
  1. HEPARIN SODIUM INJECTION [Suspect]
     Indication: PROPHYLAXIS
     Route: 058
     Dates: start: 20080303, end: 20080312
  2. HEPARIN SODIUM INJECTION [Suspect]
     Route: 058
     Dates: start: 20080407, end: 20080408
  3. HEPARIN SODIUM INJECTION [Suspect]
     Route: 040
     Dates: start: 20080408, end: 20080408
  4. HEPARIN SODIUM 5,000 UNITS IN DEXTROSE 5% [Suspect]
     Indication: ATRIAL FIBRILLATION
     Route: 041
     Dates: start: 20080408
  5. HEPARIN SODIUM INJECTION [Suspect]
     Indication: INTRAVENOUS CATHETER MANAGEMENT
     Route: 042
     Dates: start: 20080313, end: 20080301
  6. ALBUTEROL SULFATE AND IPRATROPIUM BROMIDE [Concomitant]
     Indication: DRUG USE FOR UNKNOWN INDICATION
     Route: 055
  7. ASPIRIN [Concomitant]
     Indication: DRUG USE FOR UNKNOWN INDICATION
     Route: 048
  8. IMIPENEM AND CILASTATIN SODIUM [Concomitant]
     Indication: PNEUMONIA
     Route: 042
  9. DOCUSATE [Concomitant]
     Indication: DRUG USE FOR UNKNOWN INDICATION
     Route: 048
  10. FLUNISOLIDE [Concomitant]
     Indication: DRUG USE FOR UNKNOWN INDICATION
     Route: 055
  11. EFORMOTEROL FUMARATE [Concomitant]
     Indication: DRUG USE FOR UNKNOWN INDICATION
     Route: 055
  12. GEMFIBROZIL [Concomitant]
     Indication: DRUG USE FOR UNKNOWN INDICATION
     Route: 048
  13. ACETAMINOPHEN AND HYDROCODONE BITARTRATE [Concomitant]
     Indication: PAIN
     Route: 048
  14. METOPROLOL TARTRATE [Concomitant]
     Indication: HYPERTENSION
     Route: 048
  15. MOMETASONE FUROATE [Concomitant]
     Indication: DRUG USE FOR UNKNOWN INDICATION
     Route: 055
  16. DAILY MULTIVITAMIN [Concomitant]
     Indication: VITAMIN SUPPLEMENTATION
     Route: 048
  17. ENSURE [Concomitant]
     Indication: MEDICAL DIET
     Route: 048
  18. OMEPRAZOLE [Concomitant]
     Indication: GASTROOESOPHAGEAL REFLUX DISEASE
     Route: 048
  19. ZOLOFT [Concomitant]
     Indication: ANXIETY
     Route: 048
  20. SODIUM CHLORIDE [Concomitant]
     Indication: INTRAVENOUS CATHETER MANAGEMENT
     Route: 042
  21. TIMOLOL MALEATE [Concomitant]
     Indication: INTRAOCULAR PRESSURE INCREASED
     Route: 047
  22. TRAVOPROST [Concomitant]
     Indication: INTRAOCULAR PRESSURE INCREASED
     Route: 047
  23. TRAZODONE HCL [Concomitant]
     Indication: INSOMNIA
     Route: 048

REACTIONS (10)
  - AGITATION [None]
  - ATRIAL FIBRILLATION [None]
  - CARDIAC ARREST [None]
  - DEATH [None]
  - ELECTROMECHANICAL DISSOCIATION [None]
  - HYPOTENSION [None]
  - PLEURAL EFFUSION [None]
  - RENAL FAILURE [None]
  - RESPIRATORY DISTRESS [None]
  - SUPRAVENTRICULAR TACHYCARDIA [None]
